FAERS Safety Report 5683572-9 (Version None)
Quarter: 2008Q2

REPORT INFORMATION
  Report Type: 
  Country: None (occurrence: None)
  Receive Date: 20080320
  Receipt Date: 20070910
  Transmission Date: 20081010
  Serious: Yes (Other)
  Sender: FDA-Public Use
  Company Number: WAES 0709USA01436

PATIENT
  Age: 54 Year
  Sex: Male
  Weight: 129.7287 kg

DRUGS (14)
  1. CANCIDAS [Suspect]
     Indication: PERITONITIS
     Dosage: 70 MG/DAILY/IV; 50 MG/DAILY/IV
     Route: 042
     Dates: start: 20070825, end: 20070825
  2. CANCIDAS [Suspect]
     Indication: PERITONITIS
     Dosage: 70 MG/DAILY/IV; 50 MG/DAILY/IV
     Route: 042
     Dates: start: 20070826, end: 20070902
  3. AMIODARONE HCL [Concomitant]
     Indication: SEPSIS
  4. DARBEPOETIN ALFA [Concomitant]
  5. ENOXAPARIN SODIUM [Concomitant]
  6. FUROSEMIDE [Concomitant]
  7. INSULIN [Concomitant]
  8. LANSOPRAZOLE [Concomitant]
  9. LORAZEPAM [Concomitant]
  10. MEROPENEM [Concomitant]
  11. METRONIDAZOLE HCL [Concomitant]
  12. MORPHINE [Concomitant]
  13. PROPOFOL [Concomitant]
  14. VANCOMYCIN HCL [Concomitant]

REACTIONS (6)
  - ALANINE AMINOTRANSFERASE INCREASED [None]
  - ASPARTATE AMINOTRANSFERASE INCREASED [None]
  - BILIRUBIN CONJUGATED INCREASED [None]
  - BLOOD ALKALINE PHOSPHATASE INCREASED [None]
  - BLOOD BILIRUBIN INCREASED [None]
  - LIVER FUNCTION TEST ABNORMAL [None]
